FAERS Safety Report 4682719-0 (Version None)
Quarter: 2005Q2

REPORT INFORMATION
  Report Type: 
  Country: None (occurrence: None)
  Receive Date: 20050531
  Receipt Date: 20050222
  Transmission Date: 20051028
  Serious: No
  Sender: FDA-Public Use
  Company Number: 702281

PATIENT
  Age: 45 Year
  Sex: Female
  Weight: 56.6996 kg

DRUGS (3)
  1. AMEVIVE [Suspect]
     Indication: GRANULOMA ANNULARE
     Dosage: 15 MG; QW; IM
     Route: 030
     Dates: start: 20031001, end: 20031201
  2. AMEVIVE [Suspect]
     Indication: GRANULOMA ANNULARE
     Dosage: 15 MG; QW; IM
     Route: 030
     Dates: start: 20040703
  3. ECHINACEA [Concomitant]

REACTIONS (6)
  - ARTHRALGIA [None]
  - DRUG INEFFECTIVE [None]
  - GRANULOMA ANNULARE [None]
  - HYPERTENSION [None]
  - NASOPHARYNGITIS [None]
  - RAYNAUD'S PHENOMENON [None]
